FAERS Safety Report 16265508 (Version 1)
Quarter: 2019Q2

REPORT INFORMATION
  Report Type: Spontaneous
  Country: US (occurrence: US)
  Receive Date: 20190502
  Receipt Date: 20190502
  Transmission Date: 20190711
  Serious: No
  Sender: FDA-Public Use
  Company Number: US-SA-2019SA119994

PATIENT
  Age: 79 Year
  Sex: Female

DRUGS (1)
  1. APIDRA SOLOSTAR [Suspect]
     Active Substance: INSULIN GLULISINE
     Indication: TYPE 2 DIABETES MELLITUS
     Dosage: SOMETIMES HE TAKES 40 UNITS SOMETIMES HE TAKES 50 UNITS
     Route: 065

REACTIONS (2)
  - Lung disorder [Unknown]
  - Cardiac disorder [Unknown]
